FAERS Safety Report 6887043-3 (Version None)
Quarter: 2010Q3

REPORT INFORMATION
  Report Type: 
  Country: None (occurrence: None)
  Receive Date: 20100730
  Receipt Date: 20100727
  Transmission Date: 20110219
  Serious: Yes (Hospitalization)
  Sender: FDA-Public Use
  Company Number: US-BRISTOL-MYERS SQUIBB COMPANY-15213606

PATIENT
  Age: 67 Year
  Sex: Male
  Weight: 122 kg

DRUGS (4)
  1. ERBITUX [Suspect]
     Indication: NON-SMALL CELL LUNG CANCER
     Dosage: LAST DOSE ON03MAY2010
     Dates: start: 20100503
  2. TAXOL [Suspect]
     Indication: NON-SMALL CELL LUNG CANCER
     Dosage: LAST DOSE ON 07JUN2010; DELAYED FOR 7 DAYS
     Dates: start: 20100503
  3. CARBOPLATIN [Suspect]
     Indication: NON-SMALL CELL LUNG CANCER
     Dosage: LAST DOSE ON:07JUN2010; DELAYED FOR 7DAYS
     Dates: start: 20100503
  4. RADIATION THERAPY [Suspect]
     Indication: NON-SMALL CELL LUNG CANCER
     Dosage: 1DF=7400CGY; LAST TREATMENT ON 07JUL2010 NO OF FRACTIONS:37, EXTERNAL BEAM RADIATION,IMRT

REACTIONS (1)
  - DYSPNOEA [None]
